FAERS Safety Report 10862387 (Version 6)
Quarter: 2023Q1

REPORT INFORMATION
  Report Type: Report from Study
  Country: US (occurrence: US)
  Receive Date: 20150224
  Receipt Date: 20230206
  Transmission Date: 20230417
  Serious: Yes (Hospitalization, Other)
  Sender: FDA-Public Use
  Company Number: US-SA-2014SA110135

PATIENT
  Age: 63 Year
  Sex: Male

DRUGS (18)
  1. TERIFLUNOMIDE [Suspect]
     Active Substance: TERIFLUNOMIDE
     Indication: Multiple sclerosis
     Dosage: 14 MG,QD
     Route: 048
     Dates: start: 20130901, end: 20140811
  2. TERIFLUNOMIDE [Suspect]
     Active Substance: TERIFLUNOMIDE
     Dosage: 14 MG,QD
     Route: 048
     Dates: start: 20140813, end: 20150801
  3. TERIFLUNOMIDE [Suspect]
     Active Substance: TERIFLUNOMIDE
     Dosage: 14 MG,QD
     Route: 048
     Dates: start: 20160422
  4. TERIFLUNOMIDE [Suspect]
     Active Substance: TERIFLUNOMIDE
     Dosage: 14 MG,QD
     Route: 048
     Dates: start: 20160722
  5. TROSPIUM [Concomitant]
     Active Substance: TROSPIUM
  6. SODIUM PHOSPHATE [Concomitant]
     Active Substance: SODIUM PHOSPHATE
  7. VITAMIN D3 [Concomitant]
     Active Substance: CHOLECALCIFEROL
  8. TIZANIDINE [Concomitant]
     Active Substance: TIZANIDINE
  9. ROSUVASTATIN [Concomitant]
     Active Substance: ROSUVASTATIN
  10. PREGABALIN [Concomitant]
     Active Substance: PREGABALIN
  11. PANTOPRAZOLE [Concomitant]
     Active Substance: PANTOPRAZOLE
  12. METFORMIN [Concomitant]
     Active Substance: METFORMIN HYDROCHLORIDE
  13. LEVOTHYROXINE [Concomitant]
     Active Substance: LEVOTHYROXINE
  14. HYDROCODONE [Concomitant]
     Active Substance: HYDROCODONE
  15. DESIPRAMINE [Concomitant]
     Active Substance: DESIPRAMINE
  16. CITALOPRAM [Concomitant]
     Active Substance: CITALOPRAM HYDROBROMIDE
  17. AMLODIPINE [Concomitant]
     Active Substance: AMLODIPINE BESYLATE
  18. MINERALS\VITAMINS [Concomitant]
     Active Substance: MINERALS\VITAMINS

REACTIONS (25)
  - Device related infection [Unknown]
  - COVID-19 [Recovered/Resolved]
  - Pneumonia [Recovered/Resolved]
  - Malaise [Recovered/Resolved]
  - Sepsis [Recovering/Resolving]
  - Cystitis [Recovering/Resolving]
  - Multiple sclerosis [Recovered/Resolved]
  - Gait inability [Unknown]
  - Aphasia [Unknown]
  - Fall [Unknown]
  - Fall [Not Recovered/Not Resolved]
  - Contusion [Not Recovered/Not Resolved]
  - Urinary tract disorder [Unknown]
  - Asthenia [Not Recovered/Not Resolved]
  - Memory impairment [Not Recovered/Not Resolved]
  - Fluid retention [Unknown]
  - Pollakiuria [Unknown]
  - Somnolence [Unknown]
  - Balance disorder [Unknown]
  - Peripheral swelling [Recovering/Resolving]
  - Pain in extremity [Not Recovered/Not Resolved]
  - Weight decreased [Unknown]
  - Tooth loss [Not Recovered/Not Resolved]
  - Walking aid user [Not Recovered/Not Resolved]
  - Bladder catheterisation [Unknown]

NARRATIVE: CASE EVENT DATE: 20150801
